FAERS Safety Report 13297952 (Version 3)
Quarter: 2017Q4

REPORT INFORMATION
  Report Type: Report from Study
  Country: JP (occurrence: JP)
  Receive Date: 20170306
  Receipt Date: 20171025
  Transmission Date: 20180320
  Serious: Yes (Hospitalization)
  Sender: FDA-Public Use
  Company Number: JP-JNJFOC-20170227072

PATIENT
  Age: 24 Month
  Sex: Male
  Weight: 11.4 kg

DRUGS (7)
  1. REMICADE [Suspect]
     Active Substance: INFLIXIMAB
     Indication: KAWASAKI^S DISEASE
     Route: 042
     Dates: start: 20170111, end: 20170111
  2. ASPIRIN. [Concomitant]
     Active Substance: ASPIRIN
     Indication: KAWASAKI^S DISEASE
     Route: 048
     Dates: start: 20170106, end: 20170213
  3. CEFOTAXIME [Concomitant]
     Active Substance: CEFOTAXIME SODIUM
     Indication: PROPHYLAXIS
     Route: 042
     Dates: start: 20170106, end: 20170116
  4. SOLITA-T NO.2 [Concomitant]
     Indication: FLUID REPLACEMENT
     Route: 042
     Dates: start: 20170106, end: 20170119
  5. KIPRES [Concomitant]
     Active Substance: MONTELUKAST SODIUM
     Indication: ASTHMA
     Dosage: BEFORE ADMINISTRATION OF REC
     Route: 048
  6. PULMICORT TURBUHALER [Concomitant]
     Active Substance: BUDESONIDE
     Indication: ASTHMA
     Dosage: BEFORE ADMINISTRATION OF REC
     Route: 055
     Dates: start: 20170403
  7. ULINASTATIN [Concomitant]
     Active Substance: ULINASTATIN
     Indication: KAWASAKI^S DISEASE
     Route: 042
     Dates: start: 20170112, end: 20170117

REACTIONS (2)
  - Pain in extremity [Recovered/Resolved]
  - Pneumonia chlamydial [Recovering/Resolving]

NARRATIVE: CASE EVENT DATE: 20170116
